FAERS Safety Report 17546829 (Version 1)
Quarter: 2020Q1

REPORT INFORMATION
  Report Type: Spontaneous
  Country: GB (occurrence: GB)
  Receive Date: 20200316
  Receipt Date: 20200316
  Transmission Date: 20200409
  Serious: Yes (Other)
  Sender: FDA-Public Use
  Company Number: GB-JAZZ-2020-GB-003361

PATIENT

DRUGS (11)
  1. PHENOXYMETHYLPENICILLIN [Concomitant]
     Active Substance: PENICILLIN V
     Indication: PRODUCT USED FOR UNKNOWN INDICATION
     Dosage: UNK
  2. ACICLOVIR [Concomitant]
     Active Substance: ACYCLOVIR
     Indication: PRODUCT USED FOR UNKNOWN INDICATION
     Dosage: UNK
  3. METOCLOPRAMIDE. [Concomitant]
     Active Substance: METOCLOPRAMIDE
     Indication: PRODUCT USED FOR UNKNOWN INDICATION
     Dosage: UNK
  4. LORAZEPAM. [Concomitant]
     Active Substance: LORAZEPAM
     Indication: PRODUCT USED FOR UNKNOWN INDICATION
     Dosage: UNK
  5. ALLOPURINOL. [Concomitant]
     Active Substance: ALLOPURINOL
     Indication: PRODUCT USED FOR UNKNOWN INDICATION
     Dosage: UNK
  6. ONDANSETRON [Concomitant]
     Active Substance: ONDANSETRON
     Indication: PRODUCT USED FOR UNKNOWN INDICATION
     Dosage: UNK
  7. VYXEOS [Suspect]
     Active Substance: CYTARABINE\DAUNORUBICIN
     Indication: CENTRAL NERVOUS SYSTEM LEUKAEMIA
     Dosage: 135UNITS/M2 X 3 DOSES
     Route: 042
     Dates: start: 20200121, end: 20200125
  8. HYDROCORTISONE. [Suspect]
     Active Substance: HYDROCORTISONE
     Indication: CENTRAL NERVOUS SYSTEM LEUKAEMIA
     Dosage: UNK
     Route: 037
     Dates: start: 20200121, end: 20200125
  9. GENTAMICIN. [Concomitant]
     Active Substance: GENTAMICIN
     Indication: PRODUCT USED FOR UNKNOWN INDICATION
     Dosage: UNK
  10. METHOTREXATE. [Suspect]
     Active Substance: METHOTREXATE
     Indication: CENTRAL NERVOUS SYSTEM LEUKAEMIA
     Dosage: 12MG IN COMBINATION WITH CYTARABINE AND HYDROCORTISONE
     Route: 037
     Dates: start: 20200121, end: 20200125
  11. CEFTAZIDIME. [Concomitant]
     Active Substance: CEFTAZIDIME
     Indication: PRODUCT USED FOR UNKNOWN INDICATION
     Dosage: UNK

REACTIONS (2)
  - Seizure [Recovered/Resolved]
  - Toxic encephalopathy [Recovered/Resolved]

NARRATIVE: CASE EVENT DATE: 20200214
